FAERS Safety Report 22627491 (Version 1)
Quarter: 2023Q2

REPORT INFORMATION
  Report Type: Spontaneous
  Country: ES (occurrence: ES)
  Receive Date: 20230622
  Receipt Date: 20230622
  Transmission Date: 20230721
  Serious: Yes (Other)
  Sender: FDA-Public Use
  Company Number: ES-PFIZER INC-PV202300107807

PATIENT
  Age: 6 Decade
  Sex: Male

DRUGS (6)
  1. AVYCAZ [Suspect]
     Active Substance: AVIBACTAM SODIUM\CEFTAZIDIME
     Indication: Pseudomonal sepsis
     Dosage: UNK
     Route: 065
     Dates: start: 2020, end: 2020
  2. AVYCAZ [Suspect]
     Active Substance: AVIBACTAM SODIUM\CEFTAZIDIME
     Indication: Pseudomonal sepsis
     Route: 065
  3. MEROPENEM [Suspect]
     Active Substance: MEROPENEM
     Indication: Haematological infection
     Dosage: TIME INTERVAL: 0.33333333 DAYS: 1 G EVERY 8 HOURS
     Route: 065
     Dates: start: 202011, end: 202106
  4. CEFEPIME [Suspect]
     Active Substance: CEFEPIME HYDROCHLORIDE
     Indication: Haematological infection
     Dosage: UNK
     Route: 065
     Dates: start: 2020, end: 2020
  5. CIPROFLOXACIN [Suspect]
     Active Substance: CIPROFLOXACIN
     Indication: Pseudomonal sepsis
     Dosage: UNK
     Route: 065
     Dates: start: 2020, end: 2020
  6. AMIKACIN [Suspect]
     Active Substance: AMIKACIN
     Indication: Haematological infection
     Dosage: UNK
     Route: 065
     Dates: start: 2020, end: 2021

REACTIONS (3)
  - Haematological infection [Unknown]
  - Drug ineffective [Unknown]
  - Pseudomonal sepsis [Unknown]
